FAERS Safety Report 9795777 (Version 1)
Quarter: 2014Q1

REPORT INFORMATION
  Report Type: Spontaneous
  Country: DE (occurrence: DE)
  Receive Date: 20140103
  Receipt Date: 20140103
  Transmission Date: 20141002
  Serious: Yes (Hospitalization, Disabling)
  Sender: FDA-Public Use
  Company Number: DE-JNJFOC-20140100381

PATIENT
  Age: 73 Year
  Sex: Female

DRUGS (5)
  1. XARELTO [Suspect]
     Indication: CEREBROVASCULAR ACCIDENT PROPHYLAXIS
     Route: 048
     Dates: start: 20130923, end: 20131104
  2. XARELTO [Suspect]
     Indication: ATRIAL FIBRILLATION
     Route: 048
     Dates: start: 20130923, end: 20131104
  3. DIGIMERCK [Concomitant]
     Route: 065
  4. BELOC ZOK [Concomitant]
     Route: 065
  5. RAMIPRIL [Concomitant]
     Route: 065

REACTIONS (3)
  - Thalamus haemorrhage [Recovering/Resolving]
  - Intraventricular haemorrhage [Recovering/Resolving]
  - Cerebrovascular accident [Recovering/Resolving]
